FAERS Safety Report 9828782 (Version 1)
Quarter: 2014Q1

REPORT INFORMATION
  Report Type: Spontaneous
  Country: US (occurrence: US)
  Receive Date: 20140117
  Receipt Date: 20140117
  Transmission Date: 20141002
  Serious: Yes (Life-Threatening, Hospitalization, Other)
  Sender: FDA-Public Use
  Company Number: US-JNJFOC-20140104377

PATIENT
  Age: 66 Year
  Sex: Female
  Weight: 92.67 kg

DRUGS (5)
  1. EXTRA STRENGTH TYLENOL [Suspect]
     Route: 065
  2. EXTRA STRENGTH TYLENOL [Suspect]
     Indication: FIBROMYALGIA
     Dosage: 1-2 TABLETS, 3-4 TIMES A DAY AS NEEDED (TOTAL: 4-8 PILLS A DAY)
     Route: 065
     Dates: start: 201109, end: 201112
  3. REGULAR STRENGTH TYLENOL [Suspect]
     Route: 065
  4. REGULAR STRENGTH TYLENOL [Suspect]
     Indication: FIBROMYALGIA
     Dosage: 1-2 CAPLETES, 3-4 TIMES A DAY AS NEEDED (TOTAL: 4-8 PILLS A DAY)
     Route: 065
     Dates: start: 201109, end: 201112
  5. HYDROCODONE WITH ACETAMINOPHEN [Suspect]
     Indication: FIBROMYALGIA
     Dosage: DOSAGE STRENGTH: 7.5-750 MG
     Route: 065
     Dates: start: 201109, end: 201112

REACTIONS (3)
  - Coma [Unknown]
  - Accidental overdose [Unknown]
  - Hepatic failure [Unknown]
